FAERS Safety Report 9613705 (Version 1)
Quarter: 2013Q4

REPORT INFORMATION
  Report Type: Spontaneous
  Country: US (occurrence: US)
  Receive Date: 20131010
  Receipt Date: 20131010
  Transmission Date: 20140711
  Serious: No
  Sender: FDA-Public Use
  Company Number: US-B.I. PHARMACEUTICALS,INC./RIDGEFIELD-2013-BI-31076BP

PATIENT
  Age: 89 Year
  Sex: Male
  Weight: 70 kg

DRUGS (6)
  1. SPIRIVA [Suspect]
     Indication: PNEUMONIA
     Dosage: 18 MCG
     Route: 055
     Dates: start: 20130923
  2. VITAMIN B 12 [Concomitant]
     Route: 048
  3. CARVEDILOL [Concomitant]
     Indication: HYPERTENSION
     Dosage: 50 MG
     Route: 048
  4. ALLOPURINOL [Concomitant]
     Indication: GOUT
     Dosage: 300 MG
     Route: 048
  5. LOVASTATIN [Concomitant]
     Indication: BLOOD CHOLESTEROL INCREASED
     Dosage: 20 MG
     Route: 048
  6. ASPIRIN [Concomitant]
     Dosage: 81 MG
     Route: 048

REACTIONS (2)
  - Dry mouth [Recovered/Resolved]
  - Off label use [Not Recovered/Not Resolved]
